FAERS Safety Report 9880473 (Version 1)
Quarter: 2014Q1

REPORT INFORMATION
  Report Type: Spontaneous
  Country: FR (occurrence: FR)
  Receive Date: 20140207
  Receipt Date: 20140207
  Transmission Date: 20141002
  Serious: Yes (Death, Other)
  Sender: FDA-Public Use
  Company Number: FR-JNJFOC-20140200711

PATIENT
  Age: 21 Year
  Sex: Female

DRUGS (17)
  1. CONTRAMAL [Suspect]
     Indication: MIGRAINE
     Route: 042
     Dates: start: 20130725, end: 20130725
  2. MOTILIUM [Suspect]
     Indication: NAUSEA
     Route: 048
     Dates: start: 20130726
  3. ARESTAL [Suspect]
     Indication: DIARRHOEA
     Route: 048
     Dates: start: 20130725
  4. ESOMEPRAZOL [Suspect]
     Indication: PRODUCT USED FOR UNKNOWN INDICATION
     Route: 048
     Dates: start: 20130607
  5. ATORVASTATIN [Suspect]
     Indication: HYPERCHOLESTEROLAEMIA
     Route: 048
     Dates: start: 20130529
  6. PREDNISONE [Suspect]
     Indication: FOCAL SEGMENTAL GLOMERULOSCLEROSIS
     Route: 048
     Dates: start: 20130607
  7. DAILY [Suspect]
     Indication: CONTRACEPTION
     Route: 048
     Dates: start: 2010
  8. AMOXICILLIN+CLAVULANIC ACID [Suspect]
     Indication: PRODUCT USED FOR UNKNOWN INDICATION
     Route: 048
     Dates: start: 20130720
  9. ZOLPIDEM [Suspect]
     Indication: INSOMNIA
     Route: 048
     Dates: start: 20130725
  10. PRIMPERAN [Suspect]
     Indication: NAUSEA
     Route: 042
     Dates: start: 20130725, end: 20130725
  11. ALPRAZOLAM [Suspect]
     Indication: ANXIETY
     Route: 048
     Dates: start: 20130711
  12. SPASFON [Concomitant]
     Indication: VISCERAL PAIN
     Route: 048
     Dates: start: 20130720
  13. CACIT VITAMINE D3 [Concomitant]
     Indication: PRODUCT USED FOR UNKNOWN INDICATION
     Route: 048
     Dates: start: 20130607
  14. IRBESARTAN [Concomitant]
     Indication: HYPERTENSION
     Route: 048
     Dates: start: 20130529
  15. MONAZOL [Concomitant]
     Indication: PRODUCT USED FOR UNKNOWN INDICATION
     Route: 067
     Dates: start: 20130725, end: 20130725
  16. DOLIPRANE [Concomitant]
     Indication: PAIN
     Route: 048
     Dates: start: 20130718
  17. PARACETAMOL [Concomitant]
     Indication: PAIN
     Route: 042
     Dates: start: 20130725

REACTIONS (4)
  - Completed suicide [Fatal]
  - Decreased appetite [Not Recovered/Not Resolved]
  - Anxiety [Not Recovered/Not Resolved]
  - Insomnia [Not Recovered/Not Resolved]
